FAERS Safety Report 18628694 (Version 1)
Quarter: 2020Q4

REPORT INFORMATION
  Report Type: Spontaneous
  Country: PL (occurrence: PL)
  Receive Date: 20201217
  Receipt Date: 20201217
  Transmission Date: 20210114
  Serious: Yes (Other)
  Sender: FDA-Public Use
  Company Number: PL-BAXTER-2020BAX025485

PATIENT
  Age: 65 Year
  Sex: Female

DRUGS (1)
  1. ENDOXAN [Suspect]
     Active Substance: CYCLOPHOSPHAMIDE
     Indication: PRODUCT USED FOR UNKNOWN INDICATION
     Route: 065

REACTIONS (3)
  - Haemorrhage [Recovering/Resolving]
  - Salivary gland neoplasm [Recovering/Resolving]
  - Oesophageal haemorrhage [Recovering/Resolving]

NARRATIVE: CASE EVENT DATE: 20161003
